FAERS Safety Report 25788313 (Version 1)
Quarter: 2025Q3

REPORT INFORMATION
  Report Type: Spontaneous
  Country: US (occurrence: US)
  Receive Date: 20250910
  Receipt Date: 20250910
  Transmission Date: 20251021
  Serious: No
  Sender: SAPTALIS PHARMACEUTICALS LLC
  Company Number: US-Saptalis Pharmaceuticals LLC-2184244

PATIENT
  Age: 77 Year
  Sex: Female

DRUGS (1)
  1. CLOBETASOL PROPIONATE [Suspect]
     Active Substance: CLOBETASOL PROPIONATE

REACTIONS (1)
  - Skin swelling [Recovered/Resolved]
